FAERS Safety Report 6172027-3 (Version None)
Quarter: 2009Q2

REPORT INFORMATION
  Report Type: 
  Country: None (occurrence: None)
  Receive Date: 20090428
  Receipt Date: 20090428
  Transmission Date: 20091009
  Serious: Yes (Other)
  Sender: FDA-Public Use
  Company Number: None

PATIENT
  Sex: Female

DRUGS (1)
  1. RAPTIVA [Suspect]
     Indication: PSORIASIS
     Dosage: 125MG WEEKLY SQ
     Route: 058
     Dates: start: 20090323, end: 20090415

REACTIONS (1)
  - WHITE BLOOD CELL COUNT DECREASED [None]
